FAERS Safety Report 5824610-X (Version None)
Quarter: 2008Q3

REPORT INFORMATION
  Report Type: 
  Country: None (occurrence: None)
  Receive Date: 20080722
  Receipt Date: 20080707
  Transmission Date: 20090109
  Serious: Yes (Hospitalization)
  Sender: FDA-Public Use
  Company Number: 2008PV000054

PATIENT
  Age: 21 Year
  Sex: Male

DRUGS (2)
  1. DEPOCYT [Suspect]
     Indication: LEUKAEMIA
     Dosage: 50 MG/QOW;INTH
     Route: 037
     Dates: start: 20080526, end: 20080601
  2. DEXAMETHASONE [Concomitant]

REACTIONS (3)
  - FACIAL PALSY [None]
  - NEUROTOXICITY [None]
  - PUNCTURE SITE HAEMORRHAGE [None]
